FAERS Safety Report 8086710-6 (Version None)
Quarter: 2012Q1

REPORT INFORMATION
  Report Type: 
  Country: None (occurrence: None)
  Receive Date: 20120128
  Receipt Date: 20110610
  Transmission Date: 20120608
  Serious: No
  Sender: FDA-Public Use
  Company Number: US-ABBOTT-11P-163-0731865-00

PATIENT
  Sex: Female
  Weight: 85.352 kg

DRUGS (6)
  1. BYSTOLIC [Concomitant]
     Indication: HYPERTENSION
  2. HUMIRA [Suspect]
     Indication: RHEUMATOID ARTHRITIS
     Route: 058
     Dates: start: 20100901, end: 20110501
  3. CRESTOR [Concomitant]
     Indication: BLOOD CHOLESTEROL INCREASED
  4. CALCIUM WITH VITAMIN D [Concomitant]
     Indication: PRODUCT USED FOR UNKNOWN INDICATION
  5. HUMIRA [Suspect]
     Route: 058
     Dates: start: 20110601
  6. AMLODIPINE [Concomitant]
     Indication: HYPERTENSION

REACTIONS (4)
  - CHEST PAIN [None]
  - OROPHARYNGEAL PAIN [None]
  - DYSPNOEA [None]
  - LUNG INFECTION [None]
